FAERS Safety Report 6051739-6 (Version None)
Quarter: 2009Q1

REPORT INFORMATION
  Report Type: 
  Country: None (occurrence: None)
  Receive Date: 20090121
  Receipt Date: 20090121
  Transmission Date: 20090719
  Serious: Yes (Other)
  Sender: FDA-Public Use
  Company Number: None

PATIENT
  Age: 20 Year
  Sex: Male
  Weight: 63.9572 kg

DRUGS (1)
  1. CLARITHROMYCIN [Suspect]
     Indication: ACNE
     Dosage: 1 TABLET TWICE DAILY PO
     Route: 048
     Dates: start: 20080926, end: 20081113

REACTIONS (12)
  - ADVERSE DRUG REACTION [None]
  - ANOREXIA [None]
  - CONFUSIONAL STATE [None]
  - DISORIENTATION [None]
  - HALLUCINATION [None]
  - INSOMNIA [None]
  - IRRITABILITY [None]
  - MANIA [None]
  - NERVOUSNESS [None]
  - PARANOIA [None]
  - PSYCHOTIC DISORDER [None]
  - WEIGHT DECREASED [None]
